FAERS Safety Report 25755086 (Version 1)
Quarter: 2025Q3

REPORT INFORMATION
  Report Type: Spontaneous
  Country: EU (occurrence: EU)
  Receive Date: 20250903
  Receipt Date: 20250903
  Transmission Date: 20251020
  Serious: Yes (Death, Other)
  Sender: GILEAD
  Company Number: None

PATIENT
  Age: 79 Year
  Sex: Female

DRUGS (1)
  1. TRODELVY [Suspect]
     Active Substance: SACITUZUMAB GOVITECAN-HZIY
     Indication: Product used for unknown indication
     Route: 042
     Dates: start: 20250610, end: 20250617

REACTIONS (3)
  - Pancytopenia [Fatal]
  - Colitis [Fatal]
  - Sepsis [Fatal]

NARRATIVE: CASE EVENT DATE: 20250620
